FAERS Safety Report 6704086-0 (Version None)
Quarter: 2010Q2

REPORT INFORMATION
  Report Type: 
  Country: None (occurrence: None)
  Receive Date: 20100428
  Receipt Date: 20100415
  Transmission Date: 20101027
  Serious: Yes (Other)
  Sender: FDA-Public Use
  Company Number: AXC-2010-000103

PATIENT
  Sex: Male

DRUGS (1)
  1. MESALAMINE [Suspect]
     Indication: COLITIS ULCERATIVE
     Dosage: 1000 MG, QD, RECTAL
     Route: 054

REACTIONS (4)
  - BLOOD TEST ABNORMAL [None]
  - INTERSTITIAL LUNG DISEASE [None]
  - RASH ERYTHEMATOUS [None]
  - RASH GENERALISED [None]
